FAERS Safety Report 24176212 (Version 1)
Quarter: 2024Q3

REPORT INFORMATION
  Report Type: Spontaneous
  Country: US (occurrence: US)
  Receive Date: 20240806
  Receipt Date: 20240806
  Transmission Date: 20241017
  Serious: No
  Sender: PADAGIS
  Company Number: US-PADAGIS-2024PAD01238

PATIENT

DRUGS (1)
  1. ESTRADIOL VAGINAL [Suspect]
     Active Substance: ESTRADIOL
     Indication: Product used for unknown indication
     Dosage: 0.5 GRAM TWICE WEEKLY
     Route: 067
     Dates: start: 20240410

REACTIONS (5)
  - Underdose [Unknown]
  - Expired product administered [Unknown]
  - Product dispensing error [Unknown]
  - Product use issue [Unknown]
  - Inappropriate schedule of product administration [Unknown]
